FAERS Safety Report 9741528 (Version 2)
Quarter: 2013Q4

REPORT INFORMATION
  Report Type: Spontaneous
  Country: GB (occurrence: GB)
  Receive Date: 20131210
  Receipt Date: 20131230
  Transmission Date: 20140711
  Serious: Yes (Hospitalization)
  Sender: FDA-Public Use
  Company Number: GB-AMGEN-GBRSP2013085374

PATIENT
  Age: 46 Year
  Sex: Female

DRUGS (7)
  1. XGEVA [Suspect]
     Indication: METASTASES TO BONE
     Dosage: 120 MG, Q4WK
     Route: 058
     Dates: start: 20131016
  2. XGEVA [Suspect]
     Indication: BREAST CANCER METASTATIC
  3. TAMOXIFEN [Concomitant]
     Indication: BREAST CANCER
     Dosage: 20 MG, QD
     Route: 048
     Dates: start: 20131003
  4. THYROXINE [Concomitant]
     Indication: HYPOTHYROIDISM
     Route: 048
  5. AMITRIPTYLINE [Concomitant]
     Indication: PAIN
     Route: 048
  6. OXYCODONE [Concomitant]
     Indication: PAIN
     Route: 048
  7. VENLAFAXINE [Concomitant]
     Indication: DEPRESSION
     Dosage: UNK
     Route: 048

REACTIONS (5)
  - Hypoaesthesia [Unknown]
  - Muscle twitching [Unknown]
  - Muscle spasms [Unknown]
  - Paraesthesia [Unknown]
  - Hypocalcaemia [Not Recovered/Not Resolved]
